FAERS Safety Report 23854937 (Version 1)
Quarter: 2024Q2

REPORT INFORMATION
  Report Type: Spontaneous
  Country: US (occurrence: US)
  Receive Date: 20240514
  Receipt Date: 20240514
  Transmission Date: 20240717
  Serious: No
  Sender: FDA-Public Use
  Company Number: US-SA-SAC20240503000978

PATIENT
  Age: 79 Year
  Sex: Male

DRUGS (11)
  1. DUPIXENT [Suspect]
     Active Substance: DUPILUMAB
     Indication: Sinusitis
     Dosage: 300 MG, QOW
     Route: 058
     Dates: start: 20210119
  2. DOXYCYCLINE [Concomitant]
     Active Substance: DOXYCYCLINE
     Indication: Sinusitis
  3. VITAMINS NOS [Concomitant]
     Active Substance: VITAMINS
  4. ELIQUIS [Concomitant]
     Active Substance: APIXABAN
  5. FLECAINIDE [Concomitant]
     Active Substance: FLECAINIDE
  6. ADVAIR HFA [Concomitant]
     Active Substance: FLUTICASONE PROPIONATE\SALMETEROL XINAFOATE
  7. IRON [Concomitant]
     Active Substance: IRON
  8. CELEBREX [Concomitant]
     Active Substance: CELECOXIB
  9. SOTALOL [Concomitant]
     Active Substance: SOTALOL
  10. AMIODARONE [Concomitant]
     Active Substance: AMIODARONE
  11. FLAXSEED [Concomitant]
     Active Substance: FLAX SEED

REACTIONS (1)
  - Therapeutic product effective for unapproved indication [Unknown]
